FAERS Safety Report 23712613 (Version 1)
Quarter: 2024Q2

REPORT INFORMATION
  Report Type: Spontaneous
  Country: CN (occurrence: None)
  Receive Date: 20240405
  Receipt Date: 20240405
  Transmission Date: 20240715
  Serious: Yes (Other)
  Sender: FDA-Public Use
  Company Number: 2024A079630

PATIENT
  Age: 21550 Day
  Sex: Male
  Weight: 58 kg

DRUGS (2)
  1. PULMICORT TURBUHALER [Suspect]
     Active Substance: BUDESONIDE
     Indication: Jaundice cholestatic
     Route: 055
     Dates: start: 20200521, end: 20200527
  2. PULMICORT TURBUHALER [Suspect]
     Active Substance: BUDESONIDE
     Indication: Ampullary polyp
     Route: 055
     Dates: start: 20200521, end: 20200527

REACTIONS (1)
  - White blood cell count increased [Recovered/Resolved]

NARRATIVE: CASE EVENT DATE: 20200527
